FAERS Safety Report 8084182-9 (Version None)
Quarter: 2012Q1

REPORT INFORMATION
  Report Type: 
  Country: None (occurrence: None)
  Receive Date: 20120128
  Receipt Date: 20110208
  Transmission Date: 20120608
  Serious: No
  Sender: FDA-Public Use
  Company Number: US-ABBOTT-11P-163-0704859-00

PATIENT
  Sex: Female

DRUGS (3)
  1. HYDROCORTISONE ENEMA [Concomitant]
     Indication: PRODUCT USED FOR UNKNOWN INDICATION
     Route: 054
  2. HUMIRA [Suspect]
     Indication: CROHN'S DISEASE
     Route: 058
     Dates: start: 20101109, end: 20110125
  3. ENTOCORT EC [Concomitant]
     Indication: PRODUCT USED FOR UNKNOWN INDICATION

REACTIONS (7)
  - HEADACHE [None]
  - INCREASED TENDENCY TO BRUISE [None]
  - OCULAR HYPERAEMIA [None]
  - HYPOAESTHESIA [None]
  - CHEST PAIN [None]
  - ABNORMAL SENSATION IN EYE [None]
  - PARAESTHESIA [None]
